FAERS Safety Report 6403101-1 (Version None)
Quarter: 2009Q4

REPORT INFORMATION
  Report Type: 
  Country: None (occurrence: None)
  Receive Date: 20091016
  Receipt Date: 20091002
  Transmission Date: 20100525
  Serious: Yes (Other)
  Sender: FDA-Public Use
  Company Number: PHHY2009NO27798

PATIENT
  Sex: Male

DRUGS (3)
  1. TOBI [Suspect]
     Indication: PSEUDOMONAS INFECTION
     Dosage: 5 ML MORNING AND EVENING FOR 28 DAYS FOLLOWED BY 28 DAYS TREATMENT BREAK
     Dates: start: 20090601
  2. TOBI [Suspect]
     Dosage: UNK
     Dates: start: 20090714
  3. TOBI [Suspect]
     Dosage: UNK
     Dates: start: 20090801

REACTIONS (10)
  - BALANCE DISORDER [None]
  - BLOOD CREATININE INCREASED [None]
  - C-REACTIVE PROTEIN INCREASED [None]
  - DEPRESSION [None]
  - DIZZINESS [None]
  - GAIT DISTURBANCE [None]
  - HAEMOGLOBIN DECREASED [None]
  - MUSCULOSKELETAL DISCOMFORT [None]
  - VESTIBULAR DISORDER [None]
  - VISUAL IMPAIRMENT [None]
